FAERS Safety Report 8122571-4 (Version None)
Quarter: 2012Q1

REPORT INFORMATION
  Report Type: 
  Country: None (occurrence: None)
  Receive Date: 20120208
  Receipt Date: 20120131
  Transmission Date: 20120608
  Serious: Yes (Other)
  Sender: FDA-Public Use
  Company Number: US-BAYER-2011-040445

PATIENT
  Age: 23 Year
  Sex: Female
  Weight: 74.83 kg

DRUGS (1)
  1. YAZ [Suspect]
     Indication: CONTRACEPTION
     Dosage: UNK
     Route: 048
     Dates: start: 20090201, end: 20090501

REACTIONS (6)
  - GENERAL PHYSICAL HEALTH DETERIORATION [None]
  - ANXIETY [None]
  - CHOLELITHIASIS [None]
  - PAIN [None]
  - EMOTIONAL DISTRESS [None]
  - ABDOMINAL PAIN [None]
